FAERS Safety Report 5867216-9 (Version None)
Quarter: 2008Q3

REPORT INFORMATION
  Report Type: 
  Country: None (occurrence: None)
  Receive Date: 20080902
  Receipt Date: 20080710
  Transmission Date: 20090109
  Serious: Yes (Hospitalization, Disabling, Other)
  Sender: FDA-Public Use
  Company Number: US-PURDUE-USA_2008_0034278

PATIENT
  Age: 64 Year
  Sex: Female
  Weight: 68 kg

DRUGS (4)
  1. OXYCONTIN [Suspect]
     Indication: PAIN
     Dosage: 40 MG, BID
     Route: 048
     Dates: start: 19991101, end: 20001001
  2. KLONOPIN [Concomitant]
     Indication: DRUG USE FOR UNKNOWN INDICATION
  3. COUMADIN [Concomitant]
     Indication: DRUG USE FOR UNKNOWN INDICATION
  4. ZOLOFT [Concomitant]

REACTIONS (11)
  - AMNESIA [None]
  - ANGER [None]
  - CEREBRAL ATROPHY [None]
  - DELUSION [None]
  - DEMENTIA [None]
  - HALLUCINATION [None]
  - INCONTINENCE [None]
  - INTENTIONAL SELF-INJURY [None]
  - PARANOIA [None]
  - PSYCHOTIC DISORDER [None]
  - THINKING ABNORMAL [None]
